FAERS Safety Report 7101818-7 (Version None)
Quarter: 2010Q4

REPORT INFORMATION
  Report Type: 
  Country: None (occurrence: None)
  Receive Date: 20101115
  Receipt Date: 20101102
  Transmission Date: 20110411
  Serious: Yes (Hospitalization, Other)
  Sender: FDA-Public Use
  Company Number: PHHY2010FR74685

PATIENT
  Sex: Female

DRUGS (10)
  1. VOLTAREN [Suspect]
     Indication: BACK PAIN
     Dosage: UNK
     Route: 048
     Dates: start: 20100929, end: 20101005
  2. CYCLADOL [Suspect]
     Indication: BACK PAIN
     Dosage: UNK
     Route: 048
     Dates: start: 20100913, end: 20100929
  3. MOBIC [Suspect]
     Indication: BACK PAIN
     Dosage: UNK
     Route: 048
     Dates: start: 20100929, end: 20101005
  4. DOLIPRANE [Concomitant]
     Indication: BACK PAIN
     Dosage: UNK
     Dates: start: 20100913, end: 20100929
  5. DAFALGAN [Concomitant]
     Indication: BACK PAIN
     Dosage: UNK
     Dates: start: 20101005, end: 20101012
  6. MYOLASTAN [Concomitant]
     Indication: BACK PAIN
     Dosage: UNK
     Dates: start: 20100929, end: 20101013
  7. RIVOTRIL [Concomitant]
     Dosage: UNK
  8. CONTRAMAL [Concomitant]
     Dosage: UNK
  9. NISIS [Concomitant]
     Dosage: UNK
     Dates: end: 20101014
  10. PARIET [Concomitant]
     Dosage: UNK

REACTIONS (11)
  - ALANINE AMINOTRANSFERASE INCREASED [None]
  - ASPARTATE AMINOTRANSFERASE INCREASED [None]
  - BACK PAIN [None]
  - BLOOD ALKALINE PHOSPHATASE INCREASED [None]
  - BLOOD BILIRUBIN INCREASED [None]
  - FALL [None]
  - GLUCOSE TOLERANCE TEST [None]
  - HEPATITIS CHOLESTATIC [None]
  - INFLAMMATION [None]
  - PANCREATIC CYST [None]
  - RENAL FAILURE [None]
